FAERS Safety Report 9637329 (Version 1)
Quarter: 2013Q4

REPORT INFORMATION
  Report Type: Report from Study
  Country: US (occurrence: US)
  Receive Date: 20131022
  Receipt Date: 20131022
  Transmission Date: 20140711
  Serious: Yes (Other)
  Sender: FDA-Public Use
  Company Number: US-JNJFOC-20131010190

PATIENT
  Age: 10 Year
  Sex: Female

DRUGS (2)
  1. CISAPRIDE [Suspect]
     Route: 065
  2. CISAPRIDE [Suspect]
     Indication: GASTROOESOPHAGEAL REFLUX DISEASE
     Route: 065

REACTIONS (1)
  - Electrocardiogram QT prolonged [Unknown]
